FAERS Safety Report 5214719-6 (Version None)
Quarter: 2007Q1

REPORT INFORMATION
  Report Type: 
  Country: None (occurrence: None)
  Receive Date: 20070122
  Receipt Date: 20070109
  Transmission Date: 20070707
  Serious: Yes (Hospitalization)
  Sender: FDA-Public Use
  Company Number: FR-ELI_LILLY_AND_COMPANY-FR200701001496

PATIENT
  Age: 60 Year
  Sex: Female

DRUGS (3)
  1. EVISTA [Suspect]
     Indication: OSTEOPOROSIS
     Dosage: 60 MG, DAILY (1/D)
     Route: 048
     Dates: start: 20060123, end: 20060131
  2. LOCATOP [Concomitant]
     Indication: ERYTHEMA
     Route: 061
     Dates: start: 20060119, end: 20060131
  3. ERYTHROGEL [Concomitant]
     Route: 061
     Dates: end: 20060131

REACTIONS (2)
  - ECZEMA [None]
  - RASH ERYTHEMATOUS [None]
